FAERS Safety Report 15715052 (Version 2)
Quarter: 2019Q1

REPORT INFORMATION
  Report Type: Spontaneous
  Country: CO (occurrence: CO)
  Receive Date: 20181212
  Receipt Date: 20190107
  Transmission Date: 20190417
  Serious: Yes (Other)
  Sender: FDA-Public Use
  Company Number: CO-BAYER-2018-225589

PATIENT
  Age: 36 Year
  Sex: Female

DRUGS (2)
  1. MIRENA [Suspect]
     Active Substance: LEVONORGESTREL
     Indication: MENORRHAGIA
     Dosage: 20 MCG/24HR, CONT
     Dates: start: 2015
  2. SALOFALK [AMINOSALICYLIC ACID] [Concomitant]
     Indication: COLITIS

REACTIONS (5)
  - Headache [None]
  - Fatigue [None]
  - Pain in extremity [None]
  - Cerebral cyst [None]
  - Vision blurred [None]

NARRATIVE: CASE EVENT DATE: 2016
